FAERS Safety Report 12986285 (Version 2)
Quarter: 2016Q4

REPORT INFORMATION
  Report Type: Spontaneous
  Country: NL (occurrence: NL)
  Receive Date: 20161130
  Receipt Date: 20161207
  Transmission Date: 20170207
  Serious: Yes (Hospitalization)
  Sender: FDA-Public Use
  Company Number: NL-TEVA-713839ACC

PATIENT
  Age: 76 Year
  Sex: Female
  Weight: 69 kg

DRUGS (15)
  1. CARBOPLATINE INFUUS [Suspect]
     Active Substance: CARBOPLATIN
     Indication: NON-SMALL CELL LUNG CANCER
     Dosage: EXTRA INFO: ONCE PER 3 WEEKS
     Route: 042
     Dates: start: 20161025
  2. OXYCONTIN [Concomitant]
     Active Substance: OXYCODONE HYDROCHLORIDE
     Dosage: 20 MILLIGRAM DAILY; 2 TIMES PER DAY 1 PIECE
     Route: 048
  3. ATORVASTATINE TABLET 40MG (ALS CA-ZOUT-3-WATER) [Concomitant]
     Route: 048
  4. OXAZEPAM TABLET 10MG [Concomitant]
     Dosage: IF NECESSARY 1 TIME PER DAY 1 PIECE
     Route: 048
  5. NIFEDIPINE TABLET MGA 30MG [Concomitant]
     Active Substance: NIFEDIPINE
     Dosage: 60 MILLIGRAM DAILY; 2 TIMES PER DAY 1 PIECE
     Route: 048
  6. FLOXAPEN INJECTIEPOEDER FLACON 1000MG [Concomitant]
     Dosage: 4000 MILLIGRAM DAILY; 4 TIMES PER DAY 1 PIECE
     Route: 048
  7. ACETYLSALICYLZUUR DISPERTABLET 80MG [Concomitant]
     Active Substance: ASPIRIN
     Dosage: 80 MILLIGRAM DAILY; 1 TIME PER DAY 1 PIECE
     Route: 048
  8. PANTOPRAZOL TABLET MSR 40MG [Concomitant]
     Active Substance: PANTOPRAZOLE SODIUM
     Dosage: 40 MILLIGRAM DAILY; 1 TIME PER DAY 1 PIECE
     Route: 048
  9. PARACETAMOL TABLET  500MG [Concomitant]
     Active Substance: ACETAMINOPHEN
     Dosage: 2000 MILLIGRAM DAILY; 4 TIMES DAILY
     Route: 048
  10. METOPROLOL TABLET MGA 100MG (SUCCINAAT) [Concomitant]
     Active Substance: METOPROLOL
     Dosage: 2400 MILLIGRAM DAILY; 1 TIME PER DAY 1 PIECE
     Route: 048
  11. EZETROL TABLET 10MG [Concomitant]
     Dosage: 10 MILLIGRAM DAILY; 1 TIME PER DAY 1 PIECE
     Route: 048
  12. CEFTAZIDIM INJECTIEPOEDER 1000MG [Concomitant]
     Dosage: 3000 MILLIGRAM DAILY; 3 TIMES PER DAY 1 PIECE
     Route: 042
  13. PROMOCARD DURETTE TABLET MGA  30MG [Concomitant]
     Dosage: 30 MILLIGRAM DAILY; 1 TIME1 PER DAY 1 PIECE
     Route: 048
  14. BRILIQUE TABLET FILMOMHULD 90MG [Concomitant]
     Dosage: ACCORDING TO AGREEMENT
     Route: 048
  15. OXYNORM CAPSULE  5MG [Concomitant]
     Active Substance: OXYCODONE HYDROCHLORIDE
     Dosage: IF NECESSARY
     Route: 048

REACTIONS (1)
  - Gouty arthritis [Recovering/Resolving]

NARRATIVE: CASE EVENT DATE: 20161030
